FAERS Safety Report 6910764-0 (Version None)
Quarter: 2010Q3

REPORT INFORMATION
  Report Type: 
  Country: None (occurrence: None)
  Receive Date: 20100716
  Receipt Date: 20091013
  Transmission Date: 20110219
  Serious: Yes (Other)
  Sender: FDA-Public Use
  Company Number: 2009283822

PATIENT
  Sex: Male

DRUGS (2)
  1. CELEBREX [Suspect]
  2. CODEINE (CODEINE) SYRUP [Suspect]

REACTIONS (3)
  - BLOOD CREATININE INCREASED [None]
  - CARDIAC DISORDER [None]
  - PRURITUS [None]
